FAERS Safety Report 9842375 (Version 3)
Quarter: 2015Q3

REPORT INFORMATION
  Report Type: Spontaneous
  Country: US (occurrence: US)
  Receive Date: 20140124
  Receipt Date: 20150730
  Transmission Date: 20151125
  Serious: No
  Sender: FDA-Public Use
  Company Number: US-GILEAD-2011-0036082

PATIENT
  Sex: Female

DRUGS (19)
  1. ZOCOR [Concomitant]
     Active Substance: SIMVASTATIN
  2. MAG ++ [Concomitant]
  3. CENTRUM [Concomitant]
     Active Substance: VITAMINS
  4. OMEPRAZOLE. [Concomitant]
     Active Substance: OMEPRAZOLE
  5. IRON [Concomitant]
     Active Substance: IRON
  6. RANEXA [Suspect]
     Active Substance: RANOLAZINE
     Indication: PRODUCT USED FOR UNKNOWN INDICATION
  7. GABAPENTIN. [Concomitant]
     Active Substance: GABAPENTIN
  8. METFORMIN [Concomitant]
     Active Substance: METFORMIN HYDROCHLORIDE
  9. BUSPIRONE [Concomitant]
     Active Substance: BUSPIRONE HYDROCHLORIDE
  10. ZINC [Concomitant]
     Active Substance: ZINC\ZINC CHLORIDE
  11. OSCAL [Concomitant]
     Active Substance: CALCIUM CARBONATE
  12. IMDUR [Concomitant]
     Active Substance: ISOSORBIDE MONONITRATE
  13. ASA [Concomitant]
     Active Substance: ASPIRIN
  14. NORTRIPTYLINE [Concomitant]
     Active Substance: NORTRIPTYLINE
  15. METOPROLOL [Concomitant]
     Active Substance: METOPROLOL
  16. LAMICTAL [Concomitant]
     Active Substance: LAMOTRIGINE
  17. SINGULAIR [Concomitant]
     Active Substance: MONTELUKAST SODIUM
  18. COLACE [Concomitant]
     Active Substance: DOCUSATE SODIUM
  19. MOBIC [Concomitant]
     Active Substance: MELOXICAM

REACTIONS (1)
  - Weight decreased [Unknown]
